FAERS Safety Report 7656944-0 (Version None)
Quarter: 2011Q3

REPORT INFORMATION
  Report Type: 
  Country: None (occurrence: None)
  Receive Date: 20110802
  Receipt Date: 20110722
  Transmission Date: 20111222
  Serious: Yes (Death)
  Sender: FDA-Public Use
  Company Number: JP-2011-11225

PATIENT
  Age: 79 Year
  Sex: Female

DRUGS (9)
  1. SAMSCA [Suspect]
     Indication: CARDIAC FAILURE CHRONIC
     Dosage: ORAL
     Route: 048
     Dates: start: 20110604, end: 20110609
  2. ALLOPURINOL [Concomitant]
  3. FULCALIQ (AMINO ACIDS NOS, CARBOHYDRATES NOS, ELECTROLYTES NOS, VITAMI [Concomitant]
  4. LASIX [Concomitant]
  5. ASPIRIN [Concomitant]
  6. PLETAAL (CILOSTAZOL) ORODISPERSIBLE [Concomitant]
  7. ISOSORBIDE DINITRATE [Concomitant]
  8. AMLODIPINE BESYLATE [Concomitant]
  9. LANSOPRAZOLE [Concomitant]

REACTIONS (3)
  - DRUG INEFFECTIVE [None]
  - CARDIAC FAILURE [None]
  - CONDITION AGGRAVATED [None]
